FAERS Safety Report 23357508 (Version 1)
Quarter: 2023Q4

REPORT INFORMATION
  Report Type: Spontaneous
  Country: US (occurrence: None)
  Receive Date: 20231231
  Receipt Date: 20231231
  Transmission Date: 20240110
  Serious: No
  Sender: FDA-Public Use
  Company Number: None

PATIENT
  Age: 81 Year
  Sex: Male
  Weight: 81 kg

DRUGS (1)
  1. CAMCEVI [Suspect]
     Active Substance: LEUPROLIDE MESYLATE
     Indication: Androgen therapy
     Dosage: OTHER QUANTITY : 1 INJECTION(S);?OTHER FREQUENCY : EACH SIX MONTHS;?
     Route: 058

REACTIONS (2)
  - Injection site mass [None]
  - Injection site pain [None]

NARRATIVE: CASE EVENT DATE: 20231229
